FAERS Safety Report 19005581 (Version 2)
Quarter: 2023Q4

REPORT INFORMATION
  Report Type: Spontaneous
  Country: DE (occurrence: DE)
  Receive Date: 20210313
  Receipt Date: 20231027
  Transmission Date: 20240110
  Serious: Yes (Death, Hospitalization, Other)
  Sender: FDA-Public Use
  Company Number: DE-002147023-PHNU2001DE02934

PATIENT
  Age: 73 Year
  Sex: Female
  Weight: 64 kg

DRUGS (30)
  1. LOPERAMIDE HYDROCHLORIDE [Suspect]
     Active Substance: LOPERAMIDE HYDROCHLORIDE
     Indication: Diarrhoea
     Dosage: 1 DF, SINGLE
     Route: 048
     Dates: start: 20010430, end: 20010430
  2. METRONIDAZOLE [Suspect]
     Active Substance: METRONIDAZOLE
     Indication: Cholangitis
     Route: 042
     Dates: start: 20010426, end: 20010501
  3. METRONIDAZOLE [Suspect]
     Active Substance: METRONIDAZOLE
     Route: 048
     Dates: start: 20010415, end: 20010426
  4. CIPROFLOXACIN [Suspect]
     Active Substance: CIPROFLOXACIN
     Indication: Cholangitis
     Route: 042
     Dates: start: 20010426, end: 20010501
  5. CIPROFLOXACIN [Suspect]
     Active Substance: CIPROFLOXACIN
     Route: 048
     Dates: start: 20010415, end: 20010426
  6. POTASSIUM CHLORIDE [Suspect]
     Active Substance: POTASSIUM CHLORIDE
     Indication: Hypokalaemia
     Route: 048
     Dates: start: 20010506
  7. CARBIMAZOLE [Suspect]
     Active Substance: CARBIMAZOLE
     Indication: Hyperthyroidism
     Route: 048
  8. AMINO ACIDS\DEXTROSE\ELECTROLYTES NOS [Suspect]
     Active Substance: AMINO ACIDS\DEXTROSE\ELECTROLYTES NOS
     Indication: Parenteral nutrition
     Dosage: 500 ML/DAY
     Route: 042
     Dates: start: 20010415, end: 20010427
  9. ALDACTONE [Suspect]
     Active Substance: SPIRONOLACTONE
     Indication: Oedema
     Route: 048
     Dates: start: 20010415, end: 20010425
  10. DIMENHYDRINATE [Suspect]
     Active Substance: DIMENHYDRINATE
     Indication: Nausea
     Route: 042
     Dates: start: 20010508, end: 20010508
  11. ETILEFRINE [Suspect]
     Active Substance: ETILEFRINE
     Indication: Hypotension
     Dosage: 30 DRP, ONCE/SINGLE
     Route: 048
     Dates: start: 20010508, end: 20010508
  12. MCP [Suspect]
     Active Substance: METOCLOPRAMIDE HYDROCHLORIDE
     Indication: Nausea
     Dosage: DOSAGE FORM: UNSPECIFIED, 1 AMPULE
     Route: 042
     Dates: start: 20010508, end: 20010508
  13. OMEPRAZOLE [Suspect]
     Active Substance: OMEPRAZOLE
     Indication: Prophylaxis
     Route: 042
     Dates: start: 20010426, end: 20010505
  14. OMEPRAZOLE [Suspect]
     Active Substance: OMEPRAZOLE
     Route: 042
     Dates: start: 20010508, end: 20010508
  15. HYMECROMONE [Suspect]
     Active Substance: HYMECROMONE
     Indication: Cholelithiasis
     Route: 042
     Dates: start: 20010510
  16. PREDNISOLONE SODIUM SUCCINATE [Suspect]
     Active Substance: PREDNISOLONE SODIUM SUCCINATE
     Indication: Pruritus
     Route: 042
     Dates: start: 20010511, end: 20010511
  17. PANTOZOL [Suspect]
     Active Substance: PANTOPRAZOLE SODIUM
     Indication: Prophylaxis
     Route: 048
     Dates: start: 20010506
  18. PANTOZOL [Suspect]
     Active Substance: PANTOPRAZOLE SODIUM
     Route: 048
     Dates: start: 20010415, end: 20010426
  19. PENTAZOCINE [Suspect]
     Active Substance: PENTAZOCINE
     Indication: Pain
     Route: 042
     Dates: start: 20010508, end: 20010508
  20. MEZLOCILLIN SODIUM [Suspect]
     Active Substance: MEZLOCILLIN SODIUM
     Indication: Cholangitis
     Route: 042
     Dates: start: 20010428, end: 20010501
  21. DEXTROSE [Suspect]
     Active Substance: DEXTROSE\DEXTROSE MONOHYDRATE
     Indication: Parenteral nutrition
     Route: 042
     Dates: start: 20010415, end: 20010505
  22. INSULIN HUMAN [Suspect]
     Active Substance: INSULIN HUMAN
     Indication: Diabetes mellitus
     Dosage: 16IU-12IU-8IU
     Route: 058
     Dates: start: 20010415, end: 20010426
  23. DIMETHINDENE [Suspect]
     Active Substance: DIMETHINDENE
     Indication: Pruritus
     Dosage: 1 DF, QD
     Route: 048
     Dates: start: 200104
  24. DIMETHINDENE [Suspect]
     Active Substance: DIMETHINDENE
     Dosage: DOSAGE FORM: AMPOULES, 1 AMPULE
     Route: 042
     Dates: start: 20010511, end: 20010512
  25. DIMETHINDENE [Suspect]
     Active Substance: DIMETHINDENE
     Route: 065
     Dates: start: 20010511, end: 20010511
  26. HEPARIN [Suspect]
     Active Substance: HEPARIN SODIUM
     Indication: Thrombosis prophylaxis
     Route: 058
     Dates: start: 20010426, end: 20010512
  27. INSULIN NOS [Suspect]
     Active Substance: INSULIN NOS
     Indication: Parenteral nutrition
     Dosage: 16IU-12IU-8IU
     Route: 042
     Dates: start: 20010415, end: 20010505
  28. KALIUMKLORID [Concomitant]
     Indication: Hypokalaemia
     Route: 042
     Dates: start: 20010426, end: 20010501
  29. JONOSTERIL [CALCIUM ACETATE;MAGNESIUM ACETATE TETRAHYDRATE;POTASSIUM A [Concomitant]
     Indication: Product used for unknown indication
     Route: 042
     Dates: start: 20010415, end: 20010505
  30. SODIUM CHLORIDE [Concomitant]
     Active Substance: SODIUM CHLORIDE
     Indication: Product used for unknown indication
     Dosage: 100 ML, SINGLE
     Route: 042
     Dates: start: 20010508, end: 20010508

REACTIONS (11)
  - Circulatory collapse [Fatal]
  - Toxic epidermal necrolysis [Fatal]
  - Stevens-Johnson syndrome [Fatal]
  - Cardiac arrest [Fatal]
  - Conjunctivitis [Unknown]
  - Blister [Unknown]
  - Skin lesion [Unknown]
  - Lip erosion [Unknown]
  - Skin exfoliation [Unknown]
  - Pruritus [Unknown]
  - Rash [Unknown]

NARRATIVE: CASE EVENT DATE: 20010511
